FAERS Safety Report 22588776 (Version 1)
Quarter: 2023Q2

REPORT INFORMATION
  Report Type: Spontaneous
  Country: US (occurrence: US)
  Receive Date: 20230612
  Receipt Date: 20230612
  Transmission Date: 20230722
  Serious: Yes (Death, Other)
  Sender: FDA-Public Use
  Company Number: US-AMGEN-USASP2023099623

PATIENT

DRUGS (2)
  1. INFLIXIMAB [Suspect]
     Active Substance: INFLIXIMAB
     Indication: Immune-mediated enterocolitis
     Dosage: 5 MILLIGRAM/KG
     Route: 065
  2. INFLIXIMAB [Suspect]
     Active Substance: INFLIXIMAB
     Indication: Off label use
     Dosage: 5 MILLIGRAM/KG
     Route: 065

REACTIONS (12)
  - Death [Fatal]
  - Hypothyroidism [Unknown]
  - Pneumonitis [Unknown]
  - Diarrhoea [Unknown]
  - Rash maculo-papular [Unknown]
  - Myositis [Unknown]
  - Urticaria [Unknown]
  - Pruritus [Unknown]
  - Thyroiditis [Unknown]
  - Transaminases increased [Unknown]
  - Arthritis [Unknown]
  - Off label use [Unknown]
